FAERS Safety Report 15603765 (Version 1)
Quarter: 2018Q4

REPORT INFORMATION
  Report Type: Report from Study
  Country: US (occurrence: US)
  Receive Date: 20181109
  Receipt Date: 20181109
  Transmission Date: 20190205
  Serious: Yes (Death, Other)
  Sender: FDA-Public Use
  Company Number: US-PURDUE PHARMA-USA-2014-0145156

PATIENT
  Age: 61 Year
  Sex: Female

DRUGS (1)
  1. OXYCODONE HYDROCHLORIDE. [Suspect]
     Active Substance: OXYCODONE HYDROCHLORIDE
     Indication: BACK PAIN
     Dosage: 40 MG, UNK
     Route: 048

REACTIONS (8)
  - Cerebrovascular accident [Unknown]
  - Sepsis [Unknown]
  - Hyporesponsive to stimuli [Unknown]
  - Overdose [Unknown]
  - Death [Fatal]
  - Drug abuse [Unknown]
  - White blood cell count increased [Unknown]
  - Lethargy [Unknown]

NARRATIVE: CASE EVENT DATE: 20140613
